FAERS Safety Report 7656061-X (Version None)
Quarter: 2011Q3

REPORT INFORMATION
  Report Type: 
  Country: None (occurrence: None)
  Receive Date: 20110804
  Receipt Date: 20110726
  Transmission Date: 20111222
  Serious: Yes (Other)
  Sender: FDA-Public Use
  Company Number: US-ELI_LILLY_AND_COMPANY-US201108000301

PATIENT
  Age: 51 Year
  Sex: Female
  Weight: 66.7 kg

DRUGS (1)
  1. EFFIENT [Suspect]
     Indication: PERCUTANEOUS CORONARY INTERVENTION
     Dosage: UNK, UNKNOWN
     Route: 065
     Dates: start: 20110701, end: 20110726

REACTIONS (1)
  - CORONARY ARTERY DISSECTION [None]
